FAERS Safety Report 8269046-X (Version None)
Quarter: 2012Q2

REPORT INFORMATION
  Report Type: 
  Country: None (occurrence: None)
  Receive Date: 20120409
  Receipt Date: 20120402
  Transmission Date: 20120825
  Serious: Yes (Life-Threatening, Hospitalization, Other)
  Sender: FDA-Public Use
  Company Number: JP-BAYER-2012-027228

PATIENT
  Age: 41 Year
  Sex: Male
  Weight: 51 kg

DRUGS (1)
  1. BETASERON [Suspect]
     Indication: MULTIPLE SCLEROSIS
     Dosage: DAILY DOSE 8 MIU
     Route: 058
     Dates: start: 20040101

REACTIONS (11)
  - ECZEMA [None]
  - EATING DISORDER SYMPTOM [None]
  - THROMBOTIC MICROANGIOPATHY [None]
  - MULTIPLE SCLEROSIS RELAPSE [None]
  - FACE OEDEMA [None]
  - MICROANGIOPATHIC HAEMOLYTIC ANAEMIA [None]
  - PLEURAL EFFUSION [None]
  - ASCITES [None]
  - MALIGNANT HYPERTENSION [None]
  - POSTERIOR REVERSIBLE ENCEPHALOPATHY SYNDROME [None]
  - MALAISE [None]
